FAERS Safety Report 7917045-7 (Version None)
Quarter: 2011Q4

REPORT INFORMATION
  Report Type: 
  Country: None (occurrence: None)
  Receive Date: 20111116
  Receipt Date: 20111107
  Transmission Date: 20120403
  Serious: Yes (Hospitalization)
  Sender: FDA-Public Use
  Company Number: NL-MEDIMMUNE-MEDI-0013818

PATIENT
  Sex: Male
  Weight: 6.44 kg

DRUGS (3)
  1. SYNAGIS [Suspect]
     Route: 030
     Dates: start: 20111004, end: 20111004
  2. SYNAGIS [Suspect]
     Indication: PREMATURE BABY
     Route: 030
     Dates: start: 20110907, end: 20110907
  3. FERRO DRINK [Concomitant]

REACTIONS (3)
  - INGUINAL HERNIA [None]
  - PAIN [None]
  - INFANTILE SPITTING UP [None]
